FAERS Safety Report 20517444 (Version 7)
Quarter: 2023Q1

REPORT INFORMATION
  Report Type: Report from Study
  Country: TW (occurrence: None)
  Receive Date: 20220225
  Receipt Date: 20230309
  Transmission Date: 20230417
  Serious: Yes (Hospitalization)
  Sender: FDA-Public Use
  Company Number: TW-ROCHE-3009833

PATIENT
  Age: 57 Year
  Sex: Male

DRUGS (53)
  1. ATEZOLIZUMAB [Suspect]
     Active Substance: ATEZOLIZUMAB
     Indication: Oesophageal cancer metastatic
     Route: 042
     Dates: start: 20220103
  2. CISPLATIN [Suspect]
     Active Substance: CISPLATIN
     Indication: Oesophageal cancer metastatic
     Dosage: DOSE LAST STUDY DRUG ADMIN PRIOR AE 114 MG?START DATE OF MOST RECENT DOSE OF STUDY DRUG PRIOR TO AE
     Route: 042
     Dates: start: 20220103
  3. FLUOROURACIL [Suspect]
     Active Substance: FLUOROURACIL
     Indication: Oesophageal cancer metastatic
     Dosage: MOST RECENT DOSE PRIOR TO STUDY DRUG 08/JAN/2022?DOSE LAST STUDY DRUG ADMIN PRIOR AE 5700 MG?START D
     Route: 042
     Dates: start: 20220103
  4. PANTOPRAZOLE [Concomitant]
     Active Substance: PANTOPRAZOLE
     Indication: Gastrooesophageal reflux disease
     Route: 042
     Dates: start: 20220103, end: 20220108
  5. PALONOSETRON [Concomitant]
     Active Substance: PALONOSETRON
     Route: 042
     Dates: start: 20220105, end: 20220105
  6. PALONOSETRON [Concomitant]
     Active Substance: PALONOSETRON
     Route: 042
     Dates: start: 20220124, end: 20220124
  7. PALONOSETRON [Concomitant]
     Active Substance: PALONOSETRON
     Route: 042
     Dates: start: 20220222, end: 20220222
  8. METOCLOPRAMIDE [Concomitant]
     Active Substance: METOCLOPRAMIDE
     Indication: Gastrooesophageal reflux disease
     Route: 048
     Dates: start: 20220108, end: 20220111
  9. METOCLOPRAMIDE [Concomitant]
     Active Substance: METOCLOPRAMIDE
     Route: 048
     Dates: start: 20220213, end: 20220216
  10. METOCLOPRAMIDE [Concomitant]
     Active Substance: METOCLOPRAMIDE
     Route: 048
     Dates: start: 20220124, end: 20220131
  11. METOCLOPRAMIDE [Concomitant]
     Active Substance: METOCLOPRAMIDE
     Route: 042
     Dates: start: 20220222, end: 20220228
  12. AMINOPOLY-H [Concomitant]
     Route: 042
     Dates: start: 20220122, end: 20220122
  13. AMINOPOLY-H [Concomitant]
     Route: 042
     Dates: start: 20220214, end: 20220215
  14. CHLORPHENIRAMINE [Concomitant]
     Active Substance: CHLORPHENIRAMINE
     Dosage: 1 AMPULE
     Route: 042
     Dates: start: 20220216, end: 20220216
  15. CALCIUM GLUCONATE [Concomitant]
     Active Substance: CALCIUM GLUCONATE
     Dosage: 2 AMPULE
     Route: 042
     Dates: start: 20220214, end: 20220215
  16. CALCIUM ACETATE [Concomitant]
     Active Substance: CALCIUM ACETATE
     Route: 048
     Dates: start: 20220121, end: 20220121
  17. ACETYLCYSTEINE [Concomitant]
     Active Substance: ACETYLCYSTEINE
     Indication: Productive cough
     Route: 048
     Dates: start: 20220224, end: 20220228
  18. LORAZEPAM [Concomitant]
     Active Substance: LORAZEPAM
     Indication: Insomnia
     Dosage: 1 AMPULE
     Route: 042
     Dates: start: 20220124, end: 20220124
  19. CODEINE PHOSPHATE [Concomitant]
     Active Substance: CODEINE PHOSPHATE
     Indication: Cough
     Route: 048
     Dates: start: 20220103, end: 20220214
  20. CODEINE PHOSPHATE [Concomitant]
     Active Substance: CODEINE PHOSPHATE
     Route: 048
     Dates: start: 20220125, end: 20220228
  21. COLCHICINE [Concomitant]
     Active Substance: COLCHICINE
     Indication: Gout
     Route: 048
     Dates: start: 20220214, end: 20220216
  22. IPRATROPIUM [Concomitant]
     Active Substance: IPRATROPIUM
     Indication: Productive cough
     Route: 055
     Dates: start: 20220215, end: 20220224
  23. ALANYL GLUTAMINE [Concomitant]
     Active Substance: ALANYL GLUTAMINE
     Route: 013
     Dates: start: 20220129, end: 20220129
  24. ALANYL GLUTAMINE [Concomitant]
     Active Substance: ALANYL GLUTAMINE
     Route: 013
     Dates: start: 20220228, end: 20220228
  25. APREPITANT [Concomitant]
     Active Substance: APREPITANT
     Route: 048
     Dates: start: 20220124, end: 20220126
  26. APREPITANT [Concomitant]
     Active Substance: APREPITANT
     Route: 048
     Dates: start: 20220224, end: 20220228
  27. METOCLOPRAMIDE [Concomitant]
     Active Substance: METOCLOPRAMIDE
     Dosage: 2 AMPULE
     Route: 042
     Dates: start: 20220222, end: 20220228
  28. MOSAPRIDE CITRATE [Concomitant]
     Active Substance: MOSAPRIDE CITRATE
     Indication: Gastrooesophageal reflux disease
     Route: 048
     Dates: start: 20220217, end: 20220227
  29. ESOMEPRAZOLE [Concomitant]
     Active Substance: ESOMEPRAZOLE
     Indication: Gastrooesophageal reflux disease
     Route: 048
     Dates: start: 20220108, end: 20220228
  30. CALCIUM CHLORIDE [Concomitant]
     Active Substance: CALCIUM CHLORIDE
     Dosage: 1 AMPULE
     Route: 042
     Dates: start: 20220121, end: 20220124
  31. POTASSIUM GLUCONATE [Concomitant]
     Active Substance: POTASSIUM GLUCONATE
     Route: 048
     Dates: start: 20220104, end: 20220303
  32. FENTANYL [Concomitant]
     Active Substance: FENTANYL
     Indication: Tumour pain
     Route: 061
     Dates: start: 20220104, end: 20220228
  33. GRANISETRON [Concomitant]
     Active Substance: GRANISETRON
     Dosage: 1 AMPULE
     Route: 042
     Dates: start: 20220106, end: 20220107
  34. GRANISETRON [Concomitant]
     Active Substance: GRANISETRON
     Dosage: 1 AMPULE
     Route: 042
     Dates: start: 20220214, end: 20220216
  35. GRANISETRON [Concomitant]
     Active Substance: GRANISETRON
     Route: 048
     Dates: start: 20220108, end: 20220201
  36. HYDROCORTISONE [Concomitant]
     Active Substance: HYDROCORTISONE
     Indication: Productive cough
     Route: 042
     Dates: start: 20220104, end: 20220105
  37. HYDROCORTISONE [Concomitant]
     Active Substance: HYDROCORTISONE
     Route: 042
     Dates: start: 20220222, end: 20220222
  38. OXYCODONE [Concomitant]
     Active Substance: OXYCODONE
     Indication: Tumour pain
     Route: 048
     Dates: start: 20220224, end: 20220228
  39. POTASSIUM CHLORIDE [Concomitant]
     Active Substance: POTASSIUM CHLORIDE
     Route: 013
     Dates: start: 20220222, end: 20220224
  40. POTASSIUM CHLORIDE [Concomitant]
     Active Substance: POTASSIUM CHLORIDE
     Route: 042
     Dates: start: 20220214, end: 20220215
  41. DEXAMETHASONE [Concomitant]
     Active Substance: DEXAMETHASONE
     Route: 042
     Dates: start: 20220124, end: 20220125
  42. DEXAMETHASONE [Concomitant]
     Active Substance: DEXAMETHASONE
     Route: 042
     Dates: start: 20220222, end: 20220223
  43. AMLODIPINE [Concomitant]
     Active Substance: AMLODIPINE BESYLATE
     Indication: Hypertension
     Route: 048
     Dates: start: 20220103, end: 20220227
  44. AMLODIPINE [Concomitant]
     Active Substance: AMLODIPINE BESYLATE
     Dosage: 1 AMPULE
     Route: 042
     Dates: start: 20220216, end: 20220217
  45. URSODIOL [Concomitant]
     Active Substance: URSODIOL
     Indication: Vomiting
     Route: 048
     Dates: start: 20220103, end: 20220214
  46. PHYTONADIONE [Concomitant]
     Active Substance: PHYTONADIONE
     Dosage: 1 AMPULE
     Route: 042
     Dates: start: 20220103, end: 20220109
  47. TRACETON [Concomitant]
     Indication: Tumour pain
     Route: 048
     Dates: start: 20220108, end: 20220228
  48. SENNOSIDES [Concomitant]
     Active Substance: SENNOSIDES
     Indication: Constipation
     Route: 048
     Dates: start: 20220103, end: 20220207
  49. BETAMETHASONE [Concomitant]
     Active Substance: BETAMETHASONE
     Indication: Productive cough
     Route: 061
     Dates: start: 20220214, end: 20220228
  50. ALBUMIN HUMAN [Concomitant]
     Active Substance: ALBUMIN HUMAN
     Route: 042
     Dates: start: 20220125, end: 20220128
  51. PROCHLORPERAZINE [Concomitant]
     Active Substance: PROCHLORPERAZINE
     Indication: Vomiting
     Route: 048
     Dates: start: 20220129, end: 20220227
  52. RASBURICASE [Concomitant]
     Active Substance: RASBURICASE
     Indication: Gout
     Route: 042
     Dates: start: 20220213, end: 20220216
  53. FLURBIPROFEN [Concomitant]
     Active Substance: FLURBIPROFEN
     Indication: Tumour pain
     Dosage: 4 OTHER
     Route: 061
     Dates: start: 20220222, end: 20220311

REACTIONS (2)
  - Diarrhoea [Recovered/Resolved]
  - Diarrhoea [Recovered/Resolved]

NARRATIVE: CASE EVENT DATE: 20220120
